FAERS Safety Report 6507757-4 (Version None)
Quarter: 2009Q4

REPORT INFORMATION
  Report Type: 
  Country: None (occurrence: None)
  Receive Date: 20091221
  Receipt Date: 20091210
  Transmission Date: 20100525
  Serious: Yes (Death)
  Sender: FDA-Public Use
  Company Number: AU-GENENTECH-295819

PATIENT
  Sex: Male

DRUGS (21)
  1. RITUXIMAB [Suspect]
     Indication: NON-HODGKIN'S LYMPHOMA
     Dosage: DAY 1 CYCLE 1
     Route: 065
     Dates: start: 20040830, end: 20040830
  2. RITUXIMAB [Suspect]
     Dosage: DAY 2 CYCLE 1
     Route: 065
     Dates: start: 20040831, end: 20040831
  3. RITUXIMAB [Suspect]
     Dosage: DAY 1 CYCLE2
     Route: 065
     Dates: start: 20040916
  4. RITUXIMAB [Suspect]
     Dosage: DAY 1 CYCLE 3
     Route: 065
     Dates: start: 20041014, end: 20041014
  5. ETOPOSIDE [Suspect]
     Indication: NON-HODGKIN'S LYMPHOMA
     Dosage: DAY 1,2,3 CYCLE 1
     Route: 065
     Dates: start: 20040830, end: 20040901
  6. ETOPOSIDE [Suspect]
     Dosage: DAY 1,2,3 OF CYCLE 2
     Route: 065
     Dates: start: 20040916, end: 20040918
  7. ETOPOSIDE [Suspect]
     Dosage: 200 MG, UNK
     Route: 065
     Dates: start: 20041014, end: 20041016
  8. CARBOPLATIN [Suspect]
     Indication: NON-HODGKIN'S LYMPHOMA
     Dosage: DAY 2 CYCLE 1
     Route: 065
     Dates: start: 20040831, end: 20040831
  9. CARBOPLATIN [Suspect]
     Dosage: 695 MG, UNK
     Route: 065
     Dates: start: 20040917, end: 20040917
  10. CARBOPLATIN [Suspect]
     Dosage: 800 MG, UNK
     Route: 065
     Dates: start: 20041015, end: 20041015
  11. IFOSFAMIDE [Suspect]
     Indication: NON-HODGKIN'S LYMPHOMA
     Dosage: DAY 2 CYCLE 1
     Route: 065
     Dates: start: 20040831, end: 20040831
  12. IFOSFAMIDE [Suspect]
     Dosage: DAY2 CYCLE 2
     Route: 065
     Dates: start: 20040917, end: 20040917
  13. IFOSFAMIDE [Suspect]
     Dosage: 10000 MG, UNK
     Route: 065
     Dates: start: 20041015, end: 20041015
  14. NEUPOGEN [Suspect]
     Indication: NON-HODGKIN'S LYMPHOMA
     Dosage: UNK
     Route: 065
     Dates: start: 20040904, end: 20040904
  15. NEUPOGEN [Suspect]
     Dosage: UNK
     Route: 065
     Dates: start: 20040921, end: 20040921
  16. NEUPOGEN [Suspect]
     Dosage: UNK
     Route: 065
     Dates: start: 20041019, end: 20041027
  17. CARMUSTINE [Concomitant]
     Indication: DRUG USE FOR UNKNOWN INDICATION
     Dosage: UNK
     Dates: start: 20041117
  18. CYTARABINE [Concomitant]
     Indication: DRUG USE FOR UNKNOWN INDICATION
     Dosage: UNK
     Dates: start: 20041117
  19. MELPHALAN [Concomitant]
     Dosage: UNK
     Dates: start: 20041117
  20. RED BLOOD CELLS [Concomitant]
     Indication: DRUG USE FOR UNKNOWN INDICATION
  21. PLATELETS [Concomitant]
     Indication: DRUG USE FOR UNKNOWN INDICATION

REACTIONS (4)
  - INFECTION [None]
  - NEUTROPHIL COUNT DECREASED [None]
  - PLATELET COUNT DECREASED [None]
  - TRANSITIONAL CELL CARCINOMA [None]
